FAERS Safety Report 7281446-3 (Version None)
Quarter: 2011Q1

REPORT INFORMATION
  Report Type: 
  Country: None (occurrence: None)
  Receive Date: 20110208
  Receipt Date: 20110127
  Transmission Date: 20110831
  Serious: Yes (Other)
  Sender: FDA-Public Use
  Company Number: US-AMGEN-USASP2011005348

PATIENT
  Age: 67 Year
  Sex: Female

DRUGS (2)
  1. ENBREL [Suspect]
     Indication: PSORIASIS
     Dosage: 50 MG, QWK
     Dates: start: 20080601
  2. ENBREL [Suspect]
     Indication: PSORIATIC ARTHROPATHY

REACTIONS (13)
  - SINUSITIS [None]
  - SOMNOLENCE [None]
  - HYPOAESTHESIA [None]
  - CONFUSIONAL STATE [None]
  - WEIGHT DECREASED [None]
  - SKIN DISCOLOURATION [None]
  - FLUSHING [None]
  - DECREASED APPETITE [None]
  - MEMORY IMPAIRMENT [None]
  - DRY EYE [None]
  - NERVE COMPRESSION [None]
  - PRESYNCOPE [None]
  - FATIGUE [None]
